FAERS Safety Report 8846021 (Version 1)
Quarter: 2012Q4

REPORT INFORMATION
  Report Type: 
  Country: US (occurrence: US)
  Receive Date: 20121017
  Receipt Date: 20121017
  Transmission Date: 20130627
  Serious: No
  Sender: FDA-Public Use
  Company Number: US-VERTEX PHARMACEUTICAL INC.-2012-022702

PATIENT
  Sex: Male
  Weight: 83 kg

DRUGS (9)
  1. VX-950 [Suspect]
     Indication: HEPATITIS C
     Dosage: 750 mg, tid
     Route: 048
     Dates: start: 2012
  2. PEGASYS [Suspect]
     Indication: HEPATITIS C
     Dosage: 180 ?g, UNK
     Route: 058
     Dates: start: 2012
  3. RIBASPHERE [Suspect]
     Indication: HEPATITIS C
     Dosage: 3 DF, UNK
     Dates: start: 2012
  4. QUINAPRIL [Concomitant]
     Dosage: 40 mg, qd
  5. ZETIA [Concomitant]
     Dosage: 10 mg, qd
  6. ASPIRIN AKUT [Concomitant]
     Dosage: 81 mg, qd
  7. LANTUS [Concomitant]
     Dosage: 20 ut, qd
     Route: 058
  8. CARVEDIL [Concomitant]
     Dosage: UNK, qd
  9. NOVOLOG [Concomitant]
     Dosage: 100 ut, prn

REACTIONS (2)
  - Influenza like illness [Unknown]
  - Fatigue [Unknown]
